FAERS Safety Report 11634512 (Version 1)
Quarter: 2015Q4

REPORT INFORMATION
  Report Type: Spontaneous
  Country: BR (occurrence: BR)
  Receive Date: 20151015
  Receipt Date: 20151015
  Transmission Date: 20160304
  Serious: Yes (Disabling, Other)
  Sender: FDA-Public Use
  Company Number: BR-JNJFOC-20151002597

PATIENT
  Age: 91 Year
  Sex: Female
  Weight: 40 kg

DRUGS (1)
  1. HALDOL [Suspect]
     Active Substance: HALOPERIDOL
     Indication: INSOMNIA
     Dosage: HALF TABLET OF 5 MG ONCE A DAY AT NIGHT
     Route: 048
     Dates: start: 20150924, end: 20150928

REACTIONS (16)
  - Therapeutic response unexpected [Not Recovered/Not Resolved]
  - Somnolence [Not Recovered/Not Resolved]
  - Weight decreased [Not Recovered/Not Resolved]
  - Abnormal behaviour [Not Recovered/Not Resolved]
  - Language disorder [Not Recovered/Not Resolved]
  - Musculoskeletal stiffness [Not Recovered/Not Resolved]
  - Dyskinesia [Not Recovered/Not Resolved]
  - Dyspnoea [Unknown]
  - Off label use [Unknown]
  - Psychomotor hyperactivity [Not Recovered/Not Resolved]
  - Product use issue [Unknown]
  - Wheezing [Not Recovered/Not Resolved]
  - Wrong technique in product usage process [Unknown]
  - Abasia [Not Recovered/Not Resolved]
  - Chest pain [Not Recovered/Not Resolved]
  - Tremor [Not Recovered/Not Resolved]

NARRATIVE: CASE EVENT DATE: 201509
